FAERS Safety Report 20586756 (Version 1)
Quarter: 2022Q1

REPORT INFORMATION
  Report Type: Report from Study
  Country: CO (occurrence: CO)
  Receive Date: 20220313
  Receipt Date: 20220313
  Transmission Date: 20220423
  Serious: Yes (Other)
  Sender: FDA-Public Use
  Company Number: CO-NOVARTISPH-NVSC2022CO057123

PATIENT
  Age: 68 Year
  Sex: Male

DRUGS (2)
  1. COSENTYX [Suspect]
     Active Substance: SECUKINUMAB
     Indication: Psoriasis
     Dosage: 300 MG, QW
     Route: 065
  2. COSENTYX [Suspect]
     Active Substance: SECUKINUMAB
     Dosage: 300 MG, QW (SECOND DOSE)
     Route: 065

REACTIONS (3)
  - Dermatitis exfoliative generalised [Unknown]
  - Erythema [Unknown]
  - Skin plaque [Unknown]
